FAERS Safety Report 4493885-4 (Version None)
Quarter: 2004Q4

REPORT INFORMATION
  Report Type: 
  Country: None (occurrence: None)
  Receive Date: 20041105
  Receipt Date: 20041026
  Transmission Date: 20050328
  Serious: Yes (Other)
  Sender: FDA-Public Use
  Company Number: AU-JNJFOC-20041008019

PATIENT
  Age: 35 Year
  Sex: Female

DRUGS (3)
  1. REMICADE [Suspect]
     Indication: ARTHRITIS
     Route: 042
  2. REMICADE [Suspect]
     Indication: PSORIASIS
     Route: 042
  3. METHOTREXATE [Concomitant]
     Route: 049

REACTIONS (1)
  - BASAL CELL CARCINOMA [None]
